FAERS Safety Report 14613129 (Version 1)
Quarter: 2018Q1

REPORT INFORMATION
  Report Type: Report from Study
  Country: DE (occurrence: DE)
  Receive Date: 20180308
  Receipt Date: 20180308
  Transmission Date: 20180509
  Serious: Yes (Other)
  Sender: FDA-Public Use
  Company Number: DE-TEVA-2018-DE-864487

PATIENT
  Age: 31 Year
  Sex: Male
  Weight: 82 kg

DRUGS (15)
  1. REYATAZ [Suspect]
     Active Substance: ATAZANAVIR SULFATE
     Indication: HEPATITIS C
     Route: 065
  2. NORVIR [Suspect]
     Active Substance: RITONAVIR
     Indication: HIV INFECTION
     Dosage: 100 MILLIGRAM DAILY; 100 MG, QD
     Route: 048
     Dates: start: 20100101, end: 20160720
  3. AZITHROBETA [Concomitant]
     Indication: PRODUCT USED FOR UNKNOWN INDICATION
     Dosage: 500 MG, UNK
     Route: 065
  4. BETAGALEN [Concomitant]
     Indication: PRODUCT USED FOR UNKNOWN INDICATION
     Dosage: UNK
     Route: 065
     Dates: start: 20120705
  5. SUBUTEX [Concomitant]
     Active Substance: BUPRENORPHINE HYDROCHLORIDE
     Indication: PRODUCT USED FOR UNKNOWN INDICATION
     Dosage: UNK
     Route: 065
  6. ACC AKUT [Concomitant]
     Active Substance: ACETYLCYSTEINE
     Indication: PRODUCT USED FOR UNKNOWN INDICATION
     Dosage: UNK
     Route: 065
     Dates: start: 20130314
  7. TRUVADA [Suspect]
     Active Substance: EMTRICITABINE\TENOFOVIR DISOPROXIL FUMARATE
     Indication: HIV INFECTION
     Dosage: 1 DOSAGE FORMS DAILY; 1 DF, QD
     Route: 048
     Dates: start: 20100101, end: 20160720
  8. REYATAZ [Suspect]
     Active Substance: ATAZANAVIR SULFATE
     Indication: HIV INFECTION
     Dosage: 300 MILLIGRAM DAILY; 300 MG, QD
     Route: 048
     Dates: start: 20100101, end: 20160720
  9. PEGINTERFERON ALFA-2A. [Suspect]
     Active Substance: PEGINTERFERON ALFA-2A
     Indication: CHRONIC HEPATITIS C
     Dosage: 180 ?G, QWK
     Route: 058
     Dates: start: 20120524, end: 20130425
  10. METAMIZOL HEXAL [Concomitant]
     Active Substance: METAMIZOLE SODIUM
     Indication: PRODUCT USED FOR UNKNOWN INDICATION
     Dosage: UNK
     Route: 065
     Dates: start: 20121221
  11. RIBAVIRIN. [Suspect]
     Active Substance: RIBAVIRIN
     Indication: PRODUCT USED FOR UNKNOWN INDICATION
     Dosage: 800 MILLIGRAM DAILY; 800MG, QD
     Route: 048
     Dates: start: 20120803, end: 20130425
  12. CITALOPRAM [Concomitant]
     Active Substance: CITALOPRAM HYDROBROMIDE
     Indication: PRODUCT USED FOR UNKNOWN INDICATION
     Dosage: 40 MG, UNK
     Route: 065
     Dates: start: 20121220
  13. RIBAVIRIN. [Suspect]
     Active Substance: RIBAVIRIN
     Indication: HEPATITIS C
     Dosage: 1000 MILLIGRAM DAILY; 1000 MG, QD
     Route: 048
     Dates: start: 20120524, end: 20120802
  14. TELAPREVIR [Suspect]
     Active Substance: TELAPREVIR
     Indication: CHRONIC HEPATITIS C
     Dosage: 2250 MILLIGRAM DAILY; 2250 MG, QD
     Route: 048
     Dates: start: 20120524, end: 20120816
  15. CITALOPRAM [Concomitant]
     Active Substance: CITALOPRAM HYDROBROMIDE
     Indication: PRODUCT USED FOR UNKNOWN INDICATION
     Dosage: 20 MG, UNK
     Route: 065
     Dates: start: 20120621, end: 20130601

REACTIONS (17)
  - Pruritus [Not Recovered/Not Resolved]
  - Impaired healing [Recovered/Resolved]
  - Restlessness [Recovered/Resolved]
  - Oral herpes [Recovered/Resolved]
  - Headache [Recovered/Resolved]
  - Nausea [Recovered/Resolved]
  - Sinusitis [Recovered/Resolved]
  - Vertigo [Recovered/Resolved]
  - Dizziness [Recovered/Resolved]
  - Depressed mood [Not Recovered/Not Resolved]
  - Influenza like illness [Recovered/Resolved]
  - Drug dependence [Not Recovered/Not Resolved]
  - Anaemia [Not Recovered/Not Resolved]
  - Incorrect dosage administered [Recovered/Resolved]
  - Fatigue [Recovered/Resolved]
  - Dysgeusia [Not Recovered/Not Resolved]
  - Dry skin [Not Recovered/Not Resolved]

NARRATIVE: CASE EVENT DATE: 20120524
